FAERS Safety Report 7817042-6 (Version None)
Quarter: 2011Q4

REPORT INFORMATION
  Report Type: 
  Country: None (occurrence: None)
  Receive Date: 20111017
  Receipt Date: 20111005
  Transmission Date: 20120403
  Serious: Yes (Hospitalization)
  Sender: FDA-Public Use
  Company Number: JP-BAYER-201010173BYL

PATIENT
  Age: 76 Year
  Sex: Male

DRUGS (5)
  1. NEXAVAR [Suspect]
     Route: 048
     Dates: start: 20100112
  2. NEXAVAR [Suspect]
     Route: 048
     Dates: start: 20100510, end: 20100531
  3. NEXAVAR [Suspect]
     Dosage: 400 MG, QOD
     Route: 048
     Dates: start: 20110901
  4. NEXAVAR [Suspect]
     Indication: HEPATIC NEOPLASM MALIGNANT
     Dosage: 400 MG, QD
     Route: 048
     Dates: start: 20090701
  5. NEXAVAR [Suspect]
     Dosage: 400 MG, BID
     Route: 048
     Dates: start: 20100105, end: 20100111

REACTIONS (9)
  - NEOPLASM PROGRESSION [None]
  - BRAIN STEM INFARCTION [None]
  - HEADACHE [None]
  - DIARRHOEA [None]
  - HEPATIC NEOPLASM MALIGNANT [None]
  - DEVICE DIFFICULT TO USE [None]
  - PALMAR-PLANTAR ERYTHRODYSAESTHESIA SYNDROME [None]
  - STOMATITIS [None]
  - FLUSHING [None]
